FAERS Safety Report 7191617-2 (Version None)
Quarter: 2010Q4

REPORT INFORMATION
  Report Type: 
  Country: None (occurrence: None)
  Receive Date: 20101223
  Receipt Date: 20101129
  Transmission Date: 20110411
  Serious: Yes (Other)
  Sender: FDA-Public Use
  Company Number: IL-BAYER-2010-003676

PATIENT
  Sex: Female

DRUGS (1)
  1. MIRENA [Suspect]
     Dosage: 20 MCG/24HR, CONTINUOUS
     Route: 015
     Dates: start: 20100601, end: 20100101

REACTIONS (3)
  - DEVICE EXPULSION [None]
  - MENORRHAGIA [None]
  - UTERINE LEIOMYOMA [None]
